FAERS Safety Report 7832646-2 (Version None)
Quarter: 2011Q4

REPORT INFORMATION
  Report Type: 
  Country: None (occurrence: None)
  Receive Date: 20111024
  Receipt Date: 20111019
  Transmission Date: 20120403
  Serious: No
  Sender: FDA-Public Use
  Company Number: US-BIOGENIDEC-2011BI037053

PATIENT
  Age: 77 Year
  Sex: Female

DRUGS (1)
  1. TYSABRI [Suspect]
     Indication: MULTIPLE SCLEROSIS
     Route: 042
     Dates: start: 20100508

REACTIONS (6)
  - DEHYDRATION [None]
  - RESPIRATORY TRACT CONGESTION [None]
  - LISTERIOSIS [None]
  - DIARRHOEA [None]
  - NASOPHARYNGITIS [None]
  - SNEEZING [None]
